FAERS Safety Report 8039012-8 (Version None)
Quarter: 2012Q1

REPORT INFORMATION
  Report Type: 
  Country: None (occurrence: None)
  Receive Date: 20120111
  Receipt Date: 20111209
  Transmission Date: 20120608
  Serious: No
  Sender: FDA-Public Use
  Company Number: US-AMGEN-USASP2011065890

PATIENT
  Age: 57 Year
  Sex: Female

DRUGS (1)
  1. ENBREL [Suspect]
     Indication: RHEUMATOID ARTHRITIS
     Dosage: 50 MG, QWK
     Dates: start: 20110915, end: 20111116

REACTIONS (8)
  - COUGH [None]
  - PULMONARY CONGESTION [None]
  - ORAL HERPES [None]
  - PERIODONTAL DISEASE [None]
  - NASOPHARYNGITIS [None]
  - LOWER RESPIRATORY TRACT INFECTION [None]
  - GINGIVAL RECESSION [None]
  - GINGIVAL BLEEDING [None]
